FAERS Safety Report 19137860 (Version 1)
Quarter: 2021Q2

REPORT INFORMATION
  Report Type: Spontaneous
  Country: US (occurrence: US)
  Receive Date: 20210414
  Receipt Date: 20210414
  Transmission Date: 20210717
  Serious: No
  Sender: FDA-Public Use
  Company Number: US-BLUEPRINT MEDICINES CORPORATION-SP-US-2021-000473

PATIENT
  Age: 50 Year
  Sex: Female

DRUGS (3)
  1. AYVAKIT [Suspect]
     Active Substance: AVAPRITINIB
     Indication: PRODUCT USED FOR UNKNOWN INDICATION
     Route: 065
  2. QINLOCK [Suspect]
     Active Substance: RIPRETINIB
     Indication: GASTROINTESTINAL STROMAL TUMOUR
     Route: 048
     Dates: start: 20200923
  3. QINLOCK [Suspect]
     Active Substance: RIPRETINIB
     Route: 048

REACTIONS (8)
  - Erythema [Unknown]
  - Urticaria [Unknown]
  - Cognitive disorder [Unknown]
  - Dry skin [Unknown]
  - Amnesia [Unknown]
  - Acne [Unknown]
  - Skin discolouration [Unknown]
  - Headache [Unknown]
